FAERS Safety Report 6314856-9 (Version None)
Quarter: 2009Q3

REPORT INFORMATION
  Report Type: 
  Country: None (occurrence: None)
  Receive Date: 20090819
  Receipt Date: 20090811
  Transmission Date: 20100115
  Serious: Yes (Hospitalization, Disabling, Other)
  Sender: FDA-Public Use
  Company Number: JP-PFIZER INC-2009156835

PATIENT
  Age: 53 Year

DRUGS (12)
  1. SUNITINIB MALATE [Suspect]
     Indication: RENAL CELL CARCINOMA
     Dosage: 50 MG, 1X/DAY
     Route: 048
     Dates: start: 20081106
  2. SUNITINIB MALATE [Suspect]
     Dosage: 37.5 MG, 1X/DAY
     Route: 048
     Dates: start: 20081224, end: 20090403
  3. ZOMETA [Suspect]
     Indication: METASTASES TO BONE
     Dosage: 4 MG, 1X/DAY
     Route: 042
     Dates: start: 20081113, end: 20081204
  4. NORVASC [Concomitant]
     Dosage: UNK
     Route: 048
  5. BLOPRESS [Concomitant]
     Dosage: UNK
     Route: 048
  6. URSO 250 [Concomitant]
     Dosage: UNK
     Route: 048
  7. STRONG NEO-MINOPHAGEN C [Concomitant]
     Dosage: UNK
     Route: 042
     Dates: start: 20081209, end: 20081230
  8. VOLTAREN [Concomitant]
     Dosage: UNK
     Route: 054
     Dates: start: 20081116, end: 20081205
  9. UREPEARL [Concomitant]
     Dosage: UNK
     Route: 062
     Dates: start: 20081121, end: 20081211
  10. GASTER [Concomitant]
     Dosage: UNK
     Route: 048
  11. GLYCYRON [Concomitant]
     Dosage: UNK
     Route: 048
     Dates: start: 20090105, end: 20090114
  12. TATHION [Concomitant]
     Dosage: UNK
     Route: 042
     Dates: end: 20081230

REACTIONS (5)
  - AORTIC DISSECTION [None]
  - DYSGEUSIA [None]
  - HEPATIC FUNCTION ABNORMAL [None]
  - PLATELET COUNT DECREASED [None]
  - PYREXIA [None]
